FAERS Safety Report 7878798-X (Version None)
Quarter: 2011Q4

REPORT INFORMATION
  Report Type: 
  Country: None (occurrence: None)
  Receive Date: 20111028
  Receipt Date: 20111013
  Transmission Date: 20120403
  Serious: Yes (Life-Threatening)
  Sender: FDA-Public Use
  Company Number: TUK2011A00113

PATIENT
  Age: 73 Year
  Sex: Male

DRUGS (9)
  1. ATORVASTATIN [Concomitant]
  2. DOXAZOSIN MESYLATE [Concomitant]
  3. AMLODIPINE [Concomitant]
  4. BUMETANIDE [Concomitant]
  5. METFORMIN HCL [Concomitant]
  6. ACTOS [Suspect]
     Indication: TYPE 2 DIABETES MELLITUS
     Dosage: 15 MG (15 MG) ORAL
     Route: 048
     Dates: start: 20070615, end: 20110808
  7. ACETAMINOPHEN [Concomitant]
  8. SIMVASTATIN [Concomitant]
  9. IRBESARTAN (IRBESARTAN) [Concomitant]

REACTIONS (2)
  - PROSTATE CANCER [None]
  - BLADDER CANCER [None]
